FAERS Safety Report 9257517 (Version 1)
Quarter: 2013Q2

REPORT INFORMATION
  Report Type: Spontaneous
  Country: US (occurrence: US)
  Receive Date: 20130426
  Receipt Date: 20130426
  Transmission Date: 20140414
  Serious: Yes (Other)
  Sender: FDA-Public Use
  Company Number: US-PFIZER INC-2013129162

PATIENT
  Age: 32 Year
  Sex: 0

DRUGS (5)
  1. LYRICA [Suspect]
     Dosage: 200 UNK, 2X/DAY (1 TAB PO BID)
     Route: 048
  2. ZOLOFT [Suspect]
     Dosage: 50 MG, UNK
  3. REQUIP [Concomitant]
     Dosage: 1-3 MG, UNK
  4. FANAPT [Concomitant]
     Dosage: 1-12MG, UNK
  5. AMBIEN [Concomitant]
     Dosage: 10 MG, UNK

REACTIONS (4)
  - Type 1 diabetes mellitus [Unknown]
  - Myocardial infarction [Unknown]
  - Arterial occlusive disease [Unknown]
  - Impaired work ability [Unknown]
